FAERS Safety Report 6342121-2 (Version None)
Quarter: 2009Q3

REPORT INFORMATION
  Report Type: 
  Country: None (occurrence: None)
  Receive Date: 20090903
  Receipt Date: 20090903
  Transmission Date: 20100115
  Serious: Yes (Disabling)
  Sender: FDA-Public Use
  Company Number: None

PATIENT
  Sex: Male
  Weight: 74.8435 kg

DRUGS (1)
  1. VIAGRA [Suspect]
     Indication: ERECTILE DYSFUNCTION
     Dosage: 50 MG PRN ORAL  (INFREQUENT USE OVER PAST 3 YRS)
     Route: 048

REACTIONS (2)
  - DEAFNESS UNILATERAL [None]
  - SUDDEN HEARING LOSS [None]
